FAERS Safety Report 5005251-3 (Version None)
Quarter: 2006Q2

REPORT INFORMATION
  Report Type: 
  Country: None (occurrence: None)
  Receive Date: 20060515
  Receipt Date: 20060505
  Transmission Date: 20061013
  Serious: Yes (Hospitalization)
  Sender: FDA-Public Use
  Company Number: 163-20785-06010342

PATIENT
  Age: 74 Year
  Sex: Male

DRUGS (3)
  1. THALOMID [Suspect]
     Indication: MULTIPLE MYELOMA
     Dosage: 50 MG QHS ORAL
     Route: 048
     Dates: start: 20050601, end: 20050101
  2. PREDNISONE [Concomitant]
  3. PROCRIT [Concomitant]

REACTIONS (10)
  - ASTHENIA [None]
  - BALANCE DISORDER [None]
  - CONSTIPATION [None]
  - FATIGUE [None]
  - MALAISE [None]
  - OEDEMA PERIPHERAL [None]
  - ORTHOSTATIC HYPOTENSION [None]
  - SOMNOLENCE [None]
  - TREMOR [None]
  - URINARY TRACT INFECTION [None]
